FAERS Safety Report 16762543 (Version 2)
Quarter: 2019Q3

REPORT INFORMATION
  Report Type: Spontaneous
  Country: US (occurrence: US)
  Receive Date: 20190831
  Receipt Date: 20190927
  Transmission Date: 20191005
  Serious: No
  Sender: FDA-Public Use
  Company Number: US-ASTRAZENECA-2019SF18686

PATIENT
  Sex: Female
  Weight: 101.6 kg

DRUGS (2)
  1. RADIOTHERAPY [Concomitant]
     Active Substance: RADIATION THERAPY
  2. IMFINZI [Suspect]
     Active Substance: DURVALUMAB
     Indication: LUNG CARCINOMA CELL TYPE UNSPECIFIED STAGE III
     Route: 042
     Dates: start: 201903

REACTIONS (13)
  - Hepatic steatosis [Unknown]
  - Blood cholesterol increased [Unknown]
  - Cholecystitis [Unknown]
  - Arthralgia [Unknown]
  - Joint swelling [Unknown]
  - Abdominal distension [Unknown]
  - Fatigue [Unknown]
  - Arthropathy [Unknown]
  - Osteoporosis [Unknown]
  - Gastrooesophageal reflux disease [Unknown]
  - Red blood cell count decreased [Unknown]
  - Weight loss poor [Unknown]
  - Abdominal pain upper [Unknown]
